FAERS Safety Report 6086256-0 (Version None)
Quarter: 2009Q1

REPORT INFORMATION
  Report Type: 
  Country: None (occurrence: None)
  Receive Date: 20090220
  Receipt Date: 20090212
  Transmission Date: 20090719
  Serious: Yes (Other)
  Sender: FDA-Public Use
  Company Number: US-B.I. PHARMACEUTICALS,INC./RIDGEFIELD-2009-BP-01981PF

PATIENT
  Sex: Female
  Weight: 65 kg

DRUGS (4)
  1. SPIRIVA [Suspect]
     Indication: CHRONIC OBSTRUCTIVE PULMONARY DISEASE
     Dosage: 18MCG
     Dates: start: 20080701, end: 20090201
  2. XANAX [Suspect]
     Indication: NERVOUSNESS
     Dosage: 1MG
     Dates: start: 20080701
  3. SYNTHROID [Suspect]
     Indication: THYROID DISORDER
     Dates: start: 20080701
  4. ALBUTEROL [Concomitant]

REACTIONS (5)
  - ABDOMINAL DISCOMFORT [None]
  - DYSPNOEA [None]
  - HYPERSOMNIA [None]
  - NERVOUSNESS [None]
  - WHEEZING [None]
